FAERS Safety Report 6902111-5 (Version None)
Quarter: 2010Q3

REPORT INFORMATION
  Report Type: 
  Country: None (occurrence: None)
  Receive Date: 20100803
  Receipt Date: 20080421
  Transmission Date: 20110219
  Serious: No
  Sender: FDA-Public Use
  Company Number: US-PFIZER INC-2008034927

PATIENT
  Sex: Female
  Weight: 69.4 kg

DRUGS (4)
  1. LYRICA [Suspect]
     Indication: FIBROMYALGIA
     Dates: start: 20070101
  2. CYMBALTA [Concomitant]
  3. COZAAR [Concomitant]
     Indication: HYPERTENSION
  4. BUSPAR [Concomitant]
     Indication: ANXIETY

REACTIONS (3)
  - DIZZINESS [None]
  - POLLAKIURIA [None]
  - WRONG TECHNIQUE IN DRUG USAGE PROCESS [None]
